FAERS Safety Report 9034256 (Version 1)
Quarter: 2013Q1

REPORT INFORMATION
  Report Type: Spontaneous
  Country: US (occurrence: None)
  Receive Date: 20130114
  Receipt Date: 20130114
  Transmission Date: 20140127
  Serious: Yes (Death)
  Sender: FDA-Public Use
  Company Number: AUR-APL-2013-00256

PATIENT
  Age: 38 Year
  Sex: Female

DRUGS (4)
  1. ALPRAZOLAM (ALPRAZOLAM) [Suspect]
  2. CYCLOBENZAPRINE [Suspect]
  3. OXYCODONE (OXYCODONE) [Suspect]
     Route: 048
  4. DIAZEPAM (DIAZEPAM) [Suspect]

REACTIONS (1)
  - Drug abuse [None]
